FAERS Safety Report 13148012 (Version 1)
Quarter: 2017Q1

REPORT INFORMATION
  Report Type: Spontaneous
  Country: US (occurrence: US)
  Receive Date: 20170120
  Receipt Date: 20170120
  Transmission Date: 20170428
  Serious: Yes (Other)
  Sender: FDA-Public Use
  Company Number: None

PATIENT

DRUGS (1)
  1. MARCAINE [Suspect]
     Active Substance: BUPIVACAINE HYDROCHLORIDE
     Indication: NERVE BLOCK
     Dosage: ?          OTHER FREQUENCY:ONCE;?
     Route: 008
     Dates: start: 20170102, end: 20170117

REACTIONS (2)
  - Drug ineffective [None]
  - Product quality issue [None]
